FAERS Safety Report 6273195-5 (Version None)
Quarter: 2009Q3

REPORT INFORMATION
  Report Type: 
  Country: None (occurrence: None)
  Receive Date: 20090720
  Receipt Date: 20090717
  Transmission Date: 20100115
  Serious: Yes (Hospitalization)
  Sender: FDA-Public Use
  Company Number: DE-BRISTOL-MYERS SQUIBB COMPANY-14108484

PATIENT
  Age: 60 Year
  Sex: Female
  Weight: 62 kg

DRUGS (4)
  1. SPRYCEL [Suspect]
     Indication: MASTOCYTOSIS
     Dosage: TABLETS.
     Dates: start: 20080201
  2. LEVOTHYROXINE SODIUM [Concomitant]
     Dosage: 1-0-0
  3. KETOTIFEN FUMARATE [Concomitant]
  4. LEVOCETIRIZINE DIHYDROCHLORIDE [Concomitant]
     Dosage: 1 DF = 1 TAB(1-0-0)

REACTIONS (10)
  - ANXIETY [None]
  - CHILLS [None]
  - CIRCULATORY COLLAPSE [None]
  - DIARRHOEA [None]
  - DYSPNOEA [None]
  - HYPERHIDROSIS [None]
  - LIPASE INCREASED [None]
  - NAUSEA [None]
  - RED BLOOD CELL COUNT DECREASED [None]
  - VOMITING [None]
